FAERS Safety Report 10552323 (Version 1)
Quarter: 2014Q4

REPORT INFORMATION
  Report Type: Spontaneous
  Country: US (occurrence: None)
  Receive Date: 20141028
  Receipt Date: 20141028
  Transmission Date: 20150529
  Serious: Yes (Hospitalization)
  Sender: FDA-Public Use
  Company Number: None

PATIENT
  Age: 69 Year
  Sex: Male
  Weight: 86.3 kg

DRUGS (2)
  1. CYTARABINE. [Suspect]
     Active Substance: CYTARABINE
     Indication: NERVOUS SYSTEM DISORDER
     Dosage: 50 MG OTHER OTHER
     Dates: start: 20140627, end: 20140820
  2. CYTARABINE. [Suspect]
     Active Substance: CYTARABINE
     Indication: PROPHYLAXIS
     Dosage: 50 MG OTHER OTHER
     Dates: start: 20140627, end: 20140820

REACTIONS (6)
  - Spinal disorder [None]
  - Muscular weakness [None]
  - Sensory loss [None]
  - Ischaemia [None]
  - Meningism [None]
  - Electrolyte imbalance [None]

NARRATIVE: CASE EVENT DATE: 20140824
